FAERS Safety Report 7421083-0 (Version None)
Quarter: 2011Q2

REPORT INFORMATION
  Report Type: 
  Country: None (occurrence: None)
  Receive Date: 20110418
  Receipt Date: 20110304
  Transmission Date: 20111010
  Serious: Yes (Hospitalization)
  Sender: FDA-Public Use
  Company Number: US-BAYER-201040461NA

PATIENT
  Age: 21 Year
  Sex: Female
  Weight: 52.608 kg

DRUGS (1)
  1. YAZ [Suspect]
     Indication: PRODUCT USED FOR UNKNOWN INDICATION
     Dosage: UNK
     Dates: start: 20040101, end: 20100101

REACTIONS (2)
  - CHOLECYSTITIS [None]
  - GALLBLADDER DISORDER [None]
